FAERS Safety Report 4273008-7 (Version None)
Quarter: 2004Q1

REPORT INFORMATION
  Report Type: 
  Country: None (occurrence: None)
  Receive Date: 20040114
  Receipt Date: 20040107
  Transmission Date: 20041129
  Serious: Yes (Other)
  Sender: FDA-Public Use
  Company Number: GB-JNJFOC-20040101274

PATIENT
  Sex: Female

DRUGS (1)
  1. REMICADE [Suspect]
     Indication: RHEUMATOID ARTHRITIS
     Dosage: ITRAVENOUS
     Route: 042
     Dates: start: 20021104, end: 20030205

REACTIONS (2)
  - CARCINOMA [None]
  - DRUG INEFFECTIVE [None]
